FAERS Safety Report 21667434 (Version 6)
Quarter: 2023Q2

REPORT INFORMATION
  Report Type: Report from Study
  Country: CL (occurrence: CL)
  Receive Date: 20221201
  Receipt Date: 20230607
  Transmission Date: 20230721
  Serious: Yes (Hospitalization, Other)
  Sender: FDA-Public Use
  Company Number: CL-JNJFOC-20221155953

PATIENT
  Age: 57 Year
  Sex: Male

DRUGS (1)
  1. SIMPONI [Suspect]
     Active Substance: GOLIMUMAB
     Indication: Rheumatoid arthritis
     Route: 058
     Dates: start: 20211014

REACTIONS (4)
  - Tuberculosis [Not Recovered/Not Resolved]
  - Biliary obstruction [Unknown]
  - Cholecystectomy [Unknown]
  - Hernia [Unknown]

NARRATIVE: CASE EVENT DATE: 20221101
